FAERS Safety Report 7671959-4 (Version None)
Quarter: 2011Q3

REPORT INFORMATION
  Report Type: 
  Country: None (occurrence: None)
  Receive Date: 20110809
  Receipt Date: 20110802
  Transmission Date: 20111222
  Serious: No
  Sender: FDA-Public Use
  Company Number: CH-GLAXOSMITHKLINE-B0684173A

PATIENT
  Sex: Male

DRUGS (2)
  1. VERMOX [Suspect]
     Indication: ENTEROBIASIS
     Dosage: 100MG PER DAY
     Route: 064
     Dates: start: 20100823, end: 20100823
  2. VALTREX [Suspect]
     Indication: HERPES VIRUS INFECTION
     Dosage: 500MG THREE TIMES PER DAY
     Route: 064
     Dates: start: 20100828, end: 20100901

REACTIONS (1)
  - MATERNAL EXPOSURE DURING PREGNANCY [None]
